FAERS Safety Report 4900487-1 (Version None)
Quarter: 2006Q1

REPORT INFORMATION
  Report Type: 
  Country: None (occurrence: None)
  Receive Date: 20060203
  Receipt Date: 20060125
  Transmission Date: 20060701
  Serious: Yes (Hospitalization)
  Sender: FDA-Public Use
  Company Number: FR-MERCK-0601USA03235

PATIENT
  Age: 73 Year
  Sex: Male
  Weight: 94 kg

DRUGS (9)
  1. ZOCOR [Suspect]
     Route: 048
     Dates: end: 20051219
  2. ARACYTINE [Suspect]
     Indication: ACUTE MYELOID LEUKAEMIA
     Route: 042
     Dates: start: 20051018, end: 20051203
  3. BELUSTINE [Suspect]
     Indication: ACUTE MYELOID LEUKAEMIA
     Route: 041
     Dates: start: 20051018, end: 20051018
  4. ZAVEDOS [Suspect]
     Indication: ACUTE MYELOID LEUKAEMIA
     Route: 041
     Dates: start: 20051018, end: 20051129
  5. ECAZIDE [Suspect]
     Route: 048
     Dates: end: 20051219
  6. GRANOCYTE [Suspect]
     Indication: ACUTE MYELOID LEUKAEMIA
     Route: 058
  7. CHRONADALATE [Suspect]
     Route: 065
  8. [THERAPY UNSPECIFIED] [Suspect]
     Route: 065
  9. CERVOXAN [Suspect]
     Route: 065

REACTIONS (2)
  - PNEUMONIA [None]
  - RESPIRATORY DISTRESS [None]
